FAERS Safety Report 9916147 (Version 1)
Quarter: 2014Q1

REPORT INFORMATION
  Report Type: Spontaneous
  Country: US (occurrence: None)
  Receive Date: 20140219
  Receipt Date: 20140219
  Transmission Date: 20141002
  Serious: Yes (Other)
  Sender: FDA-Public Use
  Company Number: None

PATIENT
  Age: 15 Year
  Sex: Male
  Weight: 65.77 kg

DRUGS (1)
  1. SOLODYN ER [Suspect]
     Indication: ACNE
     Dosage: 1 TABLET
     Route: 048

REACTIONS (7)
  - Malaise [None]
  - Tremor [None]
  - Pallor [None]
  - Dizziness [None]
  - Feeling abnormal [None]
  - Heart rate irregular [None]
  - Educational problem [None]
